FAERS Safety Report 13947187 (Version 9)
Quarter: 2018Q1

REPORT INFORMATION
  Report Type: Spontaneous
  Country: JP (occurrence: JP)
  Receive Date: 20170907
  Receipt Date: 20180104
  Transmission Date: 20180508
  Serious: Yes (Hospitalization)
  Sender: FDA-Public Use
  Company Number: JP-UNITED THERAPEUTICS-UNT-2016-012695

PATIENT
  Age: 35 Year
  Sex: Female

DRUGS (4)
  1. MACITENTAN [Concomitant]
     Active Substance: MACITENTAN
     Indication: PRODUCT USED FOR UNKNOWN INDICATION
     Route: 048
  2. REMODULIN [Suspect]
     Active Substance: TREPROSTINIL
     Indication: PULMONARY ARTERIAL HYPERTENSION
     Dosage: 0.001 ?G/KG, CONTINUING
     Route: 058
     Dates: start: 20160728
  3. REMODULIN [Suspect]
     Active Substance: TREPROSTINIL
     Dosage: 0.150 ?G/KG, CONTINUING
     Route: 058
  4. RIOCIGUAT [Concomitant]
     Active Substance: RIOCIGUAT
     Indication: PRODUCT USED FOR UNKNOWN INDICATION
     Route: 048

REACTIONS (13)
  - Skin discolouration [Unknown]
  - Gastroenteritis [Unknown]
  - Infusion site pain [Recovering/Resolving]
  - Diarrhoea [Recovering/Resolving]
  - Influenza [Unknown]
  - Weight control [Unknown]
  - Dermatitis allergic [Unknown]
  - Vomiting [Recovering/Resolving]
  - Helicobacter infection [Unknown]
  - Infusion site erosion [Unknown]
  - Needle issue [Unknown]
  - Infusion site erythema [Not Recovered/Not Resolved]
  - Pyrexia [Unknown]

NARRATIVE: CASE EVENT DATE: 201607
